FAERS Safety Report 8508051-2 (Version None)
Quarter: 2012Q3

REPORT INFORMATION
  Report Type: 
  Country: None (occurrence: None)
  Receive Date: 20120713
  Receipt Date: 20120711
  Transmission Date: 20120928
  Serious: Yes (Hospitalization)
  Sender: FDA-Public Use
  Company Number: PHHY2012CH027920

PATIENT
  Sex: Female

DRUGS (3)
  1. METFORMIN HYDROCHLORIDE [Concomitant]
  2. AFINITOR [Suspect]
     Indication: RENAL CANCER
     Dosage: 10 MG, DAILY
     Route: 048
     Dates: start: 20110819, end: 20120321
  3. PANTOPRAZOLE [Concomitant]

REACTIONS (4)
  - OSTEONECROSIS [None]
  - PAIN IN EXTREMITY [None]
  - SWELLING [None]
  - FEELING HOT [None]
